FAERS Safety Report 23885755 (Version 3)
Quarter: 2024Q3

REPORT INFORMATION
  Report Type: Spontaneous
  Country: US (occurrence: US)
  Receive Date: 20240522
  Receipt Date: 20240716
  Transmission Date: 20241017
  Serious: Yes (Hospitalization)
  Sender: CALLIDITAS THERAPEUTICS
  Company Number: US-Calliditas-2024CAL00744

PATIENT
  Age: 34 Year
  Sex: Male
  Weight: 77.1 kg

DRUGS (1)
  1. TARPEYO [Suspect]
     Active Substance: BUDESONIDE
     Indication: IgA nephropathy
     Route: 048
     Dates: start: 20240315

REACTIONS (3)
  - Vomiting [Unknown]
  - Hypertension [Not Recovered/Not Resolved]
  - Hospitalisation [Unknown]
